FAERS Safety Report 23895839 (Version 4)
Quarter: 2024Q2

REPORT INFORMATION
  Report Type: Spontaneous
  Country: BE (occurrence: BE)
  Receive Date: 20240524
  Receipt Date: 20240606
  Transmission Date: 20240716
  Serious: Yes (Hospitalization, Other)
  Sender: FDA-Public Use
  Company Number: BE-AMGEN-BELSP2024096866

PATIENT
  Age: 58 Year
  Sex: Female

DRUGS (2)
  1. ADALIMUMAB [Suspect]
     Active Substance: ADALIMUMAB\ISOPROPYL ALCOHOL
     Indication: Crohn^s disease
     Route: 058
  2. USTEKINUMAB [Concomitant]
     Active Substance: USTEKINUMAB
     Indication: Crohn^s disease
     Dosage: AN IL-12/IL-23-BLOCKING AGENT
     Route: 065

REACTIONS (10)
  - Gingivitis ulcerative [Recovering/Resolving]
  - Weight decreased [Unknown]
  - Granuloma [Unknown]
  - Lymphadenopathy mediastinal [Unknown]
  - Mycobacterium tuberculosis complex test positive [Unknown]
  - Lymphadenopathy [Unknown]
  - Retroperitoneal lymphadenopathy [Unknown]
  - Swelling face [Recovering/Resolving]
  - Hypophagia [Recovering/Resolving]
  - Extrapulmonary tuberculosis [Recovering/Resolving]
